FAERS Safety Report 16078197 (Version 1)
Quarter: 2019Q1

REPORT INFORMATION
  Report Type: Spontaneous
  Country: US (occurrence: US)
  Receive Date: 20190315
  Receipt Date: 20190315
  Transmission Date: 20190418
  Serious: No
  Sender: FDA-Public Use
  Company Number: US-GLAXOSMITHKLINE-US2019044329

PATIENT
  Sex: Female

DRUGS (2)
  1. VENTOLIN HFA [Suspect]
     Active Substance: ALBUTEROL SULFATE
     Indication: CHRONIC OBSTRUCTIVE PULMONARY DISEASE
     Dosage: 2 PUFF(S), Z
     Route: 055
     Dates: start: 1962
  2. VENTOLIN HFA [Suspect]
     Active Substance: ALBUTEROL SULFATE
     Indication: EMPHYSEMA

REACTIONS (6)
  - Disease progression [Unknown]
  - Secretion discharge [Unknown]
  - Wrong technique in product usage process [Unknown]
  - Cough [Unknown]
  - Chronic obstructive pulmonary disease [Unknown]
  - Condition aggravated [Unknown]

NARRATIVE: CASE EVENT DATE: 2017
